FAERS Safety Report 12501855 (Version 1)
Quarter: 2016Q2

REPORT INFORMATION
  Report Type: Spontaneous
  Country: JP (occurrence: JP)
  Receive Date: 20160627
  Receipt Date: 20160627
  Transmission Date: 20160815
  Serious: Yes (Other)
  Sender: FDA-Public Use
  Company Number: JP-SA-2016SA116205

PATIENT
  Age: 58 Year
  Sex: Male

DRUGS (5)
  1. CALCIUM LEVOFOLINATE [Concomitant]
     Active Substance: LEVOLEUCOVORIN CALCIUM
     Route: 065
  2. 5 FU [Concomitant]
     Active Substance: FLUOROURACIL
     Route: 040
  3. ELPLAT [Suspect]
     Active Substance: OXALIPLATIN
     Indication: COLON CANCER
     Route: 041
  4. 5 FU [Concomitant]
     Active Substance: FLUOROURACIL
     Route: 041
  5. VECTIBIX [Concomitant]
     Active Substance: PANITUMUMAB
     Route: 065

REACTIONS (3)
  - Liver disorder [Unknown]
  - Venoocclusive liver disease [Unknown]
  - Thrombosis [Unknown]
